FAERS Safety Report 5117673-0 (Version None)
Quarter: 2006Q3

REPORT INFORMATION
  Report Type: 
  Country: None (occurrence: None)
  Receive Date: 20060926
  Receipt Date: 20060912
  Transmission Date: 20061208
  Serious: Yes (Hospitalization)
  Sender: FDA-Public Use
  Company Number: US193678

PATIENT

DRUGS (1)
  1. ENBREL [Suspect]
     Indication: UVEITIS
     Dosage: 0.4 MG/KG, 2 IN 1 WEEKS, SC
     Route: 058

REACTIONS (1)
  - CELLULITIS [None]
